FAERS Safety Report 7637649-9 (Version None)
Quarter: 2011Q3

REPORT INFORMATION
  Report Type: 
  Country: None (occurrence: None)
  Receive Date: 20110726
  Receipt Date: 20110720
  Transmission Date: 20111222
  Serious: Yes (Hospitalization)
  Sender: FDA-Public Use
  Company Number: JP-MERCK-1106USA00061

PATIENT
  Age: 84 Year
  Sex: Male
  Weight: 49 kg

DRUGS (9)
  1. PEPCID RPD [Suspect]
     Route: 048
     Dates: start: 20110506
  2. CARVEDILOL [Concomitant]
     Route: 065
     Dates: start: 20110121
  3. LASIX [Concomitant]
     Route: 065
     Dates: start: 20110122
  4. SIGMART [Concomitant]
     Route: 065
     Dates: start: 20110121
  5. WARFARIN [Concomitant]
     Route: 065
     Dates: start: 20110406
  6. ASPENON [Concomitant]
     Route: 065
     Dates: start: 20110404
  7. ASPIRIN [Concomitant]
     Route: 065
     Dates: start: 20110120
  8. SALOBEL [Concomitant]
     Route: 065
     Dates: start: 20110216
  9. FRANDOL [Concomitant]
     Route: 065
     Dates: start: 20110211

REACTIONS (6)
  - VITAMIN B1 DEFICIENCY [None]
  - AZOTAEMIA [None]
  - CARDIAC FAILURE [None]
  - HALLUCINATION, VISUAL [None]
  - ALTERED STATE OF CONSCIOUSNESS [None]
  - DELUSION [None]
